FAERS Safety Report 7570263-2 (Version None)
Quarter: 2011Q2

REPORT INFORMATION
  Report Type: 
  Country: None (occurrence: None)
  Receive Date: 20110620
  Receipt Date: 20110610
  Transmission Date: 20111010
  Serious: Yes (Hospitalization)
  Sender: FDA-Public Use
  Company Number: 2011SP027236

PATIENT
  Sex: Female

DRUGS (1)
  1. REMERON SOLTAB [Suspect]
     Indication: DEPRESSION
     Dosage: ; QD;
     Dates: start: 20030101, end: 20110501

REACTIONS (3)
  - PRURITUS GENERALISED [None]
  - AGITATION [None]
  - FEELING JITTERY [None]
